FAERS Safety Report 15821334 (Version 4)
Quarter: 2019Q2

REPORT INFORMATION
  Report Type: Spontaneous
  Country: US (occurrence: US)
  Receive Date: 20190114
  Receipt Date: 20190610
  Transmission Date: 20190711
  Serious: Yes (Hospitalization, Other)
  Sender: FDA-Public Use
  Company Number: US-PFIZER INC-2019015268

PATIENT
  Age: 73 Year
  Sex: Male
  Weight: 154 kg

DRUGS (2)
  1. TIKOSYN [Suspect]
     Active Substance: DOFETILIDE
     Indication: CARDIOMYOPATHY
     Dosage: 750 UG, DAILY (2 IN THE AM AND 1 IN THE PM)
  2. TIKOSYN [Suspect]
     Active Substance: DOFETILIDE
     Indication: ATRIAL FIBRILLATION
     Dosage: 750 MCG, DAILY (2 PILLS IN MORNING AROUND 6:30 AM [BEFORE NOON] AND 1 PILL IN EVENING AT SUPPER
     Route: 048
     Dates: start: 201808, end: 2018

REACTIONS (6)
  - Calcinosis [Unknown]
  - Heart rate decreased [Recovered/Resolved]
  - Condition aggravated [Unknown]
  - Chondropathy [Unknown]
  - Diabetic ulcer [Unknown]
  - Musculoskeletal pain [Not Recovered/Not Resolved]
